FAERS Safety Report 4808188-5 (Version None)
Quarter: 2005Q4

REPORT INFORMATION
  Report Type: 
  Country: None (occurrence: None)
  Receive Date: 20051021
  Receipt Date: 20021105
  Transmission Date: 20060501
  Serious: Yes (Hospitalization)
  Sender: FDA-Public Use
  Company Number: US_021189641

PATIENT
  Age: 70 Year
  Sex: Female

DRUGS (6)
  1. PROZAC WEEKLY [Suspect]
     Indication: DEPRESSION
     Dosage: 90 MG /DAY
     Dates: start: 20020901
  2. ZYPREXA [Suspect]
     Indication: BIPOLAR DISORDER
     Dosage: 50 MG /DAY
     Dates: start: 20010101
  3. TRICOR [Concomitant]
  4. PREMARIN [Concomitant]
  5. CALCIUM CARBONATE [Concomitant]
  6. VITAMIN E [Concomitant]

REACTIONS (4)
  - DEPRESSION [None]
  - FALL [None]
  - LIMB INJURY [None]
  - PULMONARY EMBOLISM [None]
